FAERS Safety Report 24463566 (Version 1)
Quarter: 2024Q4

REPORT INFORMATION
  Report Type: Report from Study
  Country: US (occurrence: US)
  Receive Date: 20241018
  Receipt Date: 20241018
  Transmission Date: 20250114
  Serious: No
  Sender: ROCHE
  Company Number: US-ROCHE-3462996

PATIENT
  Age: 80 Year
  Sex: Female

DRUGS (10)
  1. XOLAIR [Suspect]
     Active Substance: OMALIZUMAB
     Indication: Chronic spontaneous urticaria
     Route: 058
  2. XOLAIR [Suspect]
     Active Substance: OMALIZUMAB
     Indication: Ear pruritus
  3. XOLAIR [Suspect]
     Active Substance: OMALIZUMAB
     Indication: Dermatitis
  4. XOLAIR [Suspect]
     Active Substance: OMALIZUMAB
     Indication: Urticaria
  5. XOLAIR [Suspect]
     Active Substance: OMALIZUMAB
     Indication: Coccidioidomycosis
  6. XOLAIR [Suspect]
     Active Substance: OMALIZUMAB
     Indication: Eosinophilia
  7. XOLAIR [Suspect]
     Active Substance: OMALIZUMAB
     Indication: Hypothyroidism
  8. XOLAIR [Suspect]
     Active Substance: OMALIZUMAB
     Indication: Goitre
  9. XOLAIR [Suspect]
     Active Substance: OMALIZUMAB
     Indication: Vitamin D deficiency
  10. XOLAIR [Suspect]
     Active Substance: OMALIZUMAB
     Indication: Bacterial infection

REACTIONS (3)
  - Pruritus [Unknown]
  - Rash [Unknown]
  - Skin discolouration [Unknown]
